FAERS Safety Report 7368796-7 (Version None)
Quarter: 2011Q1

REPORT INFORMATION
  Report Type: 
  Country: None (occurrence: None)
  Receive Date: 20110304
  Receipt Date: 20101029
  Transmission Date: 20110831
  Serious: Yes (Other)
  Sender: FDA-Public Use
  Company Number: CLOF-1000215

PATIENT
  Age: 66 Year
  Sex: Male
  Weight: 86.8 kg

DRUGS (9)
  1. FLUCONAZOLE [Concomitant]
  2. NEXIUM IV [Concomitant]
  3. THORAZINE (CHLORPROMAZINE HYDROCHLORIDIE) [Concomitant]
  4. ATIVAN [Concomitant]
  5. CYTARABINE (ESOMEPRAZOLE) SODIUM) [Suspect]
     Indication: ACUTE MYELOID LEUKAEMIA
     Dosage: 1 G/M2, QDX5, 1 G/M2, QDX4, INTRAVENOUS
     Route: 042
     Dates: start: 20080603, end: 20080606
  6. CYTARABINE (ESOMEPRAZOLE) SODIUM) [Suspect]
     Indication: ACUTE MYELOID LEUKAEMIA
     Dosage: 1 G/M2, QDX5, 1 G/M2, QDX4, INTRAVENOUS
     Route: 042
     Dates: start: 20080506, end: 20080510
  7. LEVAQUIN [Concomitant]
  8. CLOFARABINE [Suspect]
     Indication: ACUTE MYELOID LEUKAEMIA
     Dosage: 40 MG/M2, QDX5,  40MG/M2, QDX4, INTRAVENOUS
     Route: 042
     Dates: start: 20080506, end: 20080510
  9. CLOFARABINE [Suspect]
     Indication: ACUTE MYELOID LEUKAEMIA
     Dosage: 40 MG/M2, QDX5,  40MG/M2, QDX4, INTRAVENOUS
     Route: 042
     Dates: start: 20080603, end: 20080606

REACTIONS (4)
  - CYTOMEGALOVIRUS INFECTION [None]
  - VENTRICULAR HYPOKINESIA [None]
  - EJECTION FRACTION DECREASED [None]
  - CYSTITIS VIRAL [None]
